FAERS Safety Report 9776569 (Version 1)
Quarter: 2013Q4

REPORT INFORMATION
  Report Type: Spontaneous
  Country: US (occurrence: US)
  Receive Date: 20131220
  Receipt Date: 20131220
  Transmission Date: 20140711
  Serious: No
  Sender: FDA-Public Use
  Company Number: US-BIOGENIDEC-2013BI120275

PATIENT
  Age: 53 Year
  Sex: Male

DRUGS (4)
  1. TECFIDERA [Suspect]
     Indication: MULTIPLE SCLEROSIS
     Route: 048
     Dates: start: 201306
  2. MELATONIN [Concomitant]
  3. SERAQUEL [Concomitant]
  4. BENZODIAZAPINE [Concomitant]

REACTIONS (4)
  - Pain in extremity [Unknown]
  - Screaming [Unknown]
  - Pain [Unknown]
  - Arthralgia [Unknown]
